FAERS Safety Report 17394869 (Version 2)
Quarter: 2020Q1

REPORT INFORMATION
  Report Type: Spontaneous
  Country: JP (occurrence: JP)
  Receive Date: 20200210
  Receipt Date: 20200217
  Transmission Date: 20200409
  Serious: Yes (Other)
  Sender: FDA-Public Use
  Company Number: JP-GLAXOSMITHKLINE-JP2020021187

PATIENT
  Age: 70 Year
  Sex: Female

DRUGS (2)
  1. SERETIDE [Suspect]
     Active Substance: FLUTICASONE PROPIONATE\SALMETEROL XINAFOATE
     Indication: ASTHMA
     Dosage: UNK
     Route: 055
  2. SERETIDE [Suspect]
     Active Substance: FLUTICASONE PROPIONATE\SALMETEROL XINAFOATE
     Dosage: UNK
     Route: 050

REACTIONS (4)
  - Progressive supranuclear palsy [Unknown]
  - Disease progression [Unknown]
  - Product use issue [Unknown]
  - Muscular weakness [Unknown]
